FAERS Safety Report 23691138 (Version 2)
Quarter: 2024Q2

REPORT INFORMATION
  Report Type: Report from Study
  Country: NL (occurrence: NL)
  Receive Date: 20240401
  Receipt Date: 20240405
  Transmission Date: 20240715
  Serious: Yes (Hospitalization)
  Sender: FDA-Public Use
  Company Number: NL-AMGEN-NLDSP2012005508

PATIENT
  Age: 40 Year
  Sex: Female

DRUGS (9)
  1. PEGFILGRASTIM [Suspect]
     Active Substance: PEGFILGRASTIM
     Indication: Chemotherapy
     Dosage: UNK
     Route: 065
  2. DOXORUBICIN [Suspect]
     Active Substance: DOXORUBICIN
     Indication: Breast cancer
     Dosage: 102 MG, QD, CYCLICAL (811)
     Route: 042
     Dates: start: 20111027, end: 20111229
  3. DOXORUBICIN [Suspect]
     Active Substance: DOXORUBICIN
     Dosage: 102 MG,LIPOSOME INJECTION
     Route: 042
     Dates: start: 20111229
  4. DOXORUBICIN [Suspect]
     Active Substance: DOXORUBICIN
     Dosage: 102 MG,LIPOSOME INJECTION
     Route: 042
     Dates: start: 20120107
  5. CYCLOPHOSPHAMIDE [Suspect]
     Active Substance: CYCLOPHOSPHAMIDE
     Indication: Breast cancer
     Dosage: 1050 MG, UNK,CYCLICAL (811)
     Route: 042
     Dates: start: 20111027, end: 20111229
  6. DOCETAXEL [Suspect]
     Active Substance: DOCETAXEL\DOCETAXEL ANHYDROUS
     Indication: Breast cancer
     Dosage: 150 MG, QD, CYCLICAL (811)
     Route: 042
     Dates: start: 20111027, end: 20111229
  7. DOCETAXEL [Suspect]
     Active Substance: DOCETAXEL\DOCETAXEL ANHYDROUS
     Dosage: 150 MILLIGRAM
     Route: 042
     Dates: start: 20120107
  8. ONDANSETRON [Concomitant]
     Active Substance: ONDANSETRON
     Indication: Prophylaxis
  9. DEXAMETHASONE [Concomitant]
     Active Substance: DEXAMETHASONE
     Indication: Prophylaxis

REACTIONS (1)
  - Pyrexia [Not Recovered/Not Resolved]

NARRATIVE: CASE EVENT DATE: 20120107
